FAERS Safety Report 4303466-0 (Version None)
Quarter: 2004Q1

REPORT INFORMATION
  Report Type: 
  Country: None (occurrence: None)
  Receive Date: 20040223
  Receipt Date: 20040210
  Transmission Date: 20041129
  Serious: Yes (Other)
  Sender: FDA-Public Use
  Company Number: SUSI-2004-00083

PATIENT
  Age: 8 Year
  Sex: Male
  Weight: 30.4 kg

DRUGS (2)
  1. ADDERALL XR 20 [Suspect]
     Indication: ATTENTION DEFICIT/HYPERACTIVITY DISORDER
     Dosage: 30 MG, 1 X /DAY.QD
     Dates: start: 20020901
  2. ZOLOFT [Concomitant]

REACTIONS (2)
  - COMPLEX PARTIAL SEIZURES [None]
  - DRUG INEFFECTIVE [None]
